FAERS Safety Report 18846268 (Version 1)
Quarter: 2021Q1

REPORT INFORMATION
  Report Type: Report from Study
  Country: US (occurrence: US)
  Receive Date: 20210203
  Receipt Date: 20210203
  Transmission Date: 20210419
  Serious: No
  Sender: FDA-Public Use
  Company Number: US-EXELIXIS-CABO-20028643

PATIENT
  Sex: Male

DRUGS (3)
  1. ANBESOL REGULAR STRENGTH GEL [Suspect]
     Active Substance: BENZOCAINE
  2. CABOMETYX [Suspect]
     Active Substance: CABOZANTINIB S-MALATE
     Indication: METASTASES TO URINARY TRACT
  3. CABOMETYX [Suspect]
     Active Substance: CABOZANTINIB S-MALATE
     Indication: RENAL CELL CARCINOMA
     Dosage: 40 MG, QD
     Dates: start: 20200225

REACTIONS (15)
  - Fluid retention [Unknown]
  - Constipation [Unknown]
  - Metastases to bone [Unknown]
  - Fatigue [Not Recovered/Not Resolved]
  - Toothache [Unknown]
  - Rash [Not Recovered/Not Resolved]
  - Product physical issue [Unknown]
  - Peripheral swelling [Not Recovered/Not Resolved]
  - Decreased appetite [Unknown]
  - Pain in extremity [Unknown]
  - Lip swelling [Unknown]
  - Weight increased [Not Recovered/Not Resolved]
  - Hypersomnia [Unknown]
  - Diarrhoea [Recovered/Resolved]
  - Gingival pain [Unknown]
